FAERS Safety Report 11176758 (Version 1)
Quarter: 2015Q2

REPORT INFORMATION
  Report Type: Spontaneous
  Country: FR (occurrence: FR)
  Receive Date: 20150610
  Receipt Date: 20150610
  Transmission Date: 20150821
  Serious: Yes (Hospitalization)
  Sender: FDA-Public Use
  Company Number: FR-ACCORD-031344

PATIENT
  Age: 21 Year
  Sex: Male

DRUGS (7)
  1. SUPRANE [Suspect]
     Active Substance: DESFLURANE
     Indication: ANAESTHESIA
     Route: 055
     Dates: start: 20150407
  2. ATRACURIUM HOSPIRA [Concomitant]
     Active Substance: ATRACURIUM
     Indication: ANAESTHESIA
     Route: 042
     Dates: start: 20150407
  3. REMIFENTANIL/REMIFENTANIL HYDROCHLORIDE [Concomitant]
     Route: 042
     Dates: start: 20150407
  4. PROPOFOL LIPURO [Suspect]
     Active Substance: PROPOFOL
     Indication: ANAESTHESIA
     Dosage: 750 IN A SINGLE INTAKE
     Dates: start: 20150407
  5. OXALIPLATIN ACCORD [Suspect]
     Active Substance: OXALIPLATIN
     Indication: SARCOMA
     Dosage: 860 MG A DAY IN A SINGLE INTAKE
     Route: 033
     Dates: start: 20150407
  6. KETAMINE [Concomitant]
     Active Substance: KETAMINE
     Indication: ANAESTHESIA
     Route: 042
     Dates: start: 20150407
  7. FLUOROURACIL ACCORD [Suspect]
     Active Substance: FLUOROURACIL
     Indication: SARCOMA
     Dosage: 750 MG A DAY IN A SINGLE INTAKE
     Route: 042
     Dates: start: 20150407

REACTIONS (4)
  - Transaminases increased [Recovered/Resolved]
  - Hypotension [Unknown]
  - Off label use [Unknown]
  - Rhabdomyolysis [Recovered/Resolved]

NARRATIVE: CASE EVENT DATE: 20150407
